FAERS Safety Report 9883704 (Version 1)
Quarter: 2014Q1

REPORT INFORMATION
  Report Type: Spontaneous
  Country: ES (occurrence: ES)
  Receive Date: 20140210
  Receipt Date: 20140210
  Transmission Date: 20141002
  Serious: Yes (Other)
  Sender: FDA-Public Use
  Company Number: ES-009507513-1402ESP000822

PATIENT
  Age: 50 Year
  Sex: Male

DRUGS (5)
  1. PEGINTRON [Suspect]
     Indication: HEPATITIS C
     Dosage: 150 MICROGRAM, QW
     Route: 058
     Dates: start: 20130404, end: 20130522
  2. RIBAVIRIN [Suspect]
     Indication: HEPATITIS C
     Dosage: DAILY
     Route: 048
     Dates: start: 20130404, end: 20130522
  3. PEGINTRON [Concomitant]
     Indication: HEPATITIS C
     Dosage: 120 MICROGRAM, QW
     Route: 058
     Dates: start: 20120928, end: 20130404
  4. RIBAVIRIN [Concomitant]
     Indication: HEPATITIS C
     Dosage: DAILY
     Route: 048
     Dates: start: 20120928, end: 20130404
  5. TELAPREVIR [Concomitant]
     Indication: HEPATITIS C
     Dosage: 750 MG, TID
     Route: 048
     Dates: start: 20120918

REACTIONS (4)
  - Tongue ulceration [Recovered/Resolved]
  - Leukoplakia oral [Recovered/Resolved]
  - Gingival atrophy [Not Recovered/Not Resolved]
  - Tooth malformation [Not Recovered/Not Resolved]
